FAERS Safety Report 9798197 (Version 1)
Quarter: 2014Q1

REPORT INFORMATION
  Report Type: Spontaneous
  Country: US (occurrence: None)
  Receive Date: 20140103
  Receipt Date: 20140103
  Transmission Date: 20141002
  Serious: Yes (Disabling)
  Sender: FDA-Public Use
  Company Number: None

PATIENT
  Age: 60 Year
  Sex: Female
  Weight: 111.13 kg

DRUGS (1)
  1. LEVOFLOXACIN [Suspect]
     Indication: BRONCHITIS
     Dosage: 1 PILL
     Route: 048
     Dates: start: 20131223, end: 20131228

REACTIONS (4)
  - Rotator cuff syndrome [None]
  - Pain in extremity [None]
  - Arthralgia [None]
  - Pain in extremity [None]
